FAERS Safety Report 21348989 (Version 1)
Quarter: 2022Q3

REPORT INFORMATION
  Report Type: Spontaneous
  Country: CN (occurrence: None)
  Receive Date: 20220919
  Receipt Date: 20220919
  Transmission Date: 20221026
  Serious: Yes (Other)
  Sender: FDA-Public Use
  Company Number: CN-ROCHE-3180362

PATIENT
  Age: 56 Year
  Sex: Male

DRUGS (30)
  1. MABTHERA [Suspect]
     Active Substance: RITUXIMAB
     Indication: Chronic lymphocytic leukaemia
     Dosage: SUBSEQUENT THERAPY WAS ON 29/OCT/2015, 05/SEP/2016 AND 29/MAY/2016
     Route: 065
     Dates: start: 2007
  2. MABTHERA [Suspect]
     Active Substance: RITUXIMAB
     Indication: Lymphocytic lymphoma
     Dosage: /OCT/2021, /NOV/2021, /FEB/2022
     Route: 065
     Dates: start: 202201
  3. GAZYVA [Suspect]
     Active Substance: OBINUTUZUMAB
     Indication: Chronic lymphocytic leukaemia
     Dosage: SUBSEQUENT THERAPY /MAY/2022
     Route: 042
     Dates: start: 202204
  4. GAZYVA [Suspect]
     Active Substance: OBINUTUZUMAB
     Indication: Richter^s syndrome
     Route: 042
     Dates: start: 20220711
  5. GAZYVA [Suspect]
     Active Substance: OBINUTUZUMAB
     Indication: Lymphocytic lymphoma
  6. VENETOCLAX [Concomitant]
     Active Substance: VENETOCLAX
     Indication: Chronic lymphocytic leukaemia
  7. VENETOCLAX [Concomitant]
     Active Substance: VENETOCLAX
     Indication: Lymphocytic lymphoma
  8. BENDAMUSTINE [Concomitant]
     Active Substance: BENDAMUSTINE
     Indication: Chronic lymphocytic leukaemia
     Dates: start: 202201
  9. BENDAMUSTINE [Concomitant]
     Active Substance: BENDAMUSTINE
     Indication: Lymphocytic lymphoma
     Dates: start: 202202
  10. BENDAMUSTINE [Concomitant]
     Active Substance: BENDAMUSTINE
     Dates: start: 202204
  11. SELINEXOR [Concomitant]
     Active Substance: SELINEXOR
     Indication: Richter^s syndrome
     Dates: start: 20220711
  12. DEXAMETHASONE [Concomitant]
     Active Substance: DEXAMETHASONE
     Indication: Richter^s syndrome
     Dates: start: 20220711
  13. GEMCITABINE [Concomitant]
     Active Substance: GEMCITABINE
     Indication: Richter^s syndrome
     Dates: start: 20220711
  14. OXALIPLATIN [Concomitant]
     Active Substance: OXALIPLATIN
     Indication: Richter^s syndrome
     Dates: start: 20220711
  15. FLUDARABINE [Concomitant]
     Active Substance: FLUDARABINE PHOSPHATE
     Indication: Chronic lymphocytic leukaemia
     Dosage: FCR
     Dates: start: 2007
  16. FLUDARABINE [Concomitant]
     Active Substance: FLUDARABINE PHOSPHATE
     Indication: Lymphocytic lymphoma
     Dosage: FCR
     Dates: start: 20151029
  17. CYCLOPHOSPHAMIDE [Concomitant]
     Active Substance: CYCLOPHOSPHAMIDE
     Indication: Chronic lymphocytic leukaemia
     Dosage: FCR
     Dates: start: 2007
  18. CYCLOPHOSPHAMIDE [Concomitant]
     Active Substance: CYCLOPHOSPHAMIDE
     Indication: Lymphocytic lymphoma
     Dosage: FCR
     Dates: start: 20151029
  19. CYCLOPHOSPHAMIDE [Concomitant]
     Active Substance: CYCLOPHOSPHAMIDE
     Dosage: R-CHOP
     Dates: start: 20160529
  20. CYCLOPHOSPHAMIDE [Concomitant]
     Active Substance: CYCLOPHOSPHAMIDE
     Dosage: R-CHOP
     Dates: start: 20160905
  21. METHYLPREDNISOLONE [Concomitant]
     Active Substance: METHYLPREDNISOLONE
     Indication: Chronic lymphocytic leukaemia
  22. METHYLPREDNISOLONE [Concomitant]
     Active Substance: METHYLPREDNISOLONE
     Indication: Lymphocytic lymphoma
  23. DOXORUBICIN [Concomitant]
     Active Substance: DOXORUBICIN
     Indication: Chronic lymphocytic leukaemia
     Dosage: R-CHOP
     Dates: start: 20160529
  24. DOXORUBICIN [Concomitant]
     Active Substance: DOXORUBICIN
     Indication: Lymphocytic lymphoma
     Dosage: R-CHOP
     Dates: start: 20160905
  25. VINCRISTINE [Concomitant]
     Active Substance: VINCRISTINE
     Indication: Chronic lymphocytic leukaemia
     Dosage: R-CHOP
     Dates: start: 20160529
  26. VINCRISTINE [Concomitant]
     Active Substance: VINCRISTINE
     Indication: Lymphocytic lymphoma
     Dosage: R-CHOP
     Dates: start: 20160905
  27. PREDNISONE [Concomitant]
     Active Substance: PREDNISONE
     Indication: Chronic lymphocytic leukaemia
     Dosage: R-CHOP
     Dates: start: 20160529
  28. PREDNISONE [Concomitant]
     Active Substance: PREDNISONE
     Indication: Lymphocytic lymphoma
     Dosage: R-CHOP
     Dates: start: 20160905
  29. IBRUTINIB [Concomitant]
     Active Substance: IBRUTINIB
     Indication: Chronic lymphocytic leukaemia
     Route: 048
     Dates: start: 201811
  30. IBRUTINIB [Concomitant]
     Active Substance: IBRUTINIB
     Indication: Lymphocytic lymphoma

REACTIONS (3)
  - Myelosuppression [Not Recovered/Not Resolved]
  - Drug ineffective [Unknown]
  - Intentional product use issue [Unknown]
